FAERS Safety Report 24707297 (Version 1)
Quarter: 2024Q4

REPORT INFORMATION
  Report Type: Spontaneous
  Country: CN (occurrence: CN)
  Receive Date: 20241206
  Receipt Date: 20241206
  Transmission Date: 20250115
  Serious: Yes (Hospitalization)
  Sender: ELI LILLY AND COMPANY
  Company Number: CN-ELI_LILLY_AND_COMPANY-CN202411017810

PATIENT
  Age: 46 Year
  Sex: Female
  Weight: 55 kg

DRUGS (2)
  1. PEMETREXED [Suspect]
     Active Substance: PEMETREXED
     Indication: Lung neoplasm malignant
     Dosage: 0.5 G, DAILY
     Route: 041
     Dates: start: 20241120, end: 20241120
  2. CARBOPLATIN [Suspect]
     Active Substance: CARBOPLATIN
     Indication: Lung neoplasm malignant
     Dosage: 0.3 G, DAILY
     Route: 041
     Dates: start: 20241120, end: 20241120

REACTIONS (4)
  - Scratch [Unknown]
  - Skin injury [Unknown]
  - Pruritus [Not Recovered/Not Resolved]
  - Rash [Unknown]

NARRATIVE: CASE EVENT DATE: 20241120
